FAERS Safety Report 5565035-4 (Version None)
Quarter: 2007Q4

REPORT INFORMATION
  Report Type: 
  Country: None (occurrence: None)
  Receive Date: 20071212
  Receipt Date: 20071126
  Transmission Date: 20080405
  Serious: Yes (Hospitalization)
  Sender: FDA-Public Use
  Company Number: S07-FRA-05891-01

PATIENT
  Age: 44 Year
  Sex: Male

DRUGS (3)
  1. AOTAL (ACAMPROSATE) [Suspect]
     Indication: ALCOHOL WITHDRAWAL SYNDROME
     Dates: start: 20070904, end: 20070904
  2. METHADONE HCL [Suspect]
     Dosage: 120 MG QD PO
     Route: 048
     Dates: end: 20070904
  3. TRANXENE [Concomitant]

REACTIONS (6)
  - CONFUSIONAL STATE [None]
  - HYPERTENSION [None]
  - HYPOTHERMIA [None]
  - STRESS CARDIOMYOPATHY [None]
  - SUPRAVENTRICULAR TACHYCARDIA [None]
  - TACHYCARDIA [None]
